FAERS Safety Report 7827365-2 (Version None)
Quarter: 2011Q4

REPORT INFORMATION
  Report Type: 
  Country: None (occurrence: None)
  Receive Date: 20111020
  Receipt Date: 20111017
  Transmission Date: 20120403
  Serious: Yes (Other)
  Sender: FDA-Public Use
  Company Number: US-PFIZER INC-2011251284

PATIENT
  Sex: Male

DRUGS (1)
  1. NICOTROL [Suspect]

REACTIONS (3)
  - ANOSMIA [None]
  - AGEUSIA [None]
  - HYPOAESTHESIA ORAL [None]
